FAERS Safety Report 17956139 (Version 2)
Quarter: 2020Q3

REPORT INFORMATION
  Report Type: Report from Study
  Country: US (occurrence: US)
  Receive Date: 20200629
  Receipt Date: 20200709
  Transmission Date: 20201103
  Serious: No
  Sender: FDA-Public Use
  Company Number: US-PFIZER INC-2020248820

PATIENT
  Age: 68 Year
  Sex: Female

DRUGS (1)
  1. XELJANZ XR [Suspect]
     Active Substance: TOFACITINIB CITRATE
     Dosage: 11 MG
     Dates: start: 201906

REACTIONS (5)
  - Motor dysfunction [Unknown]
  - Hand deformity [Unknown]
  - Pain [Unknown]
  - Condition aggravated [Unknown]
  - Fatigue [Unknown]
